FAERS Safety Report 6403381-2 (Version None)
Quarter: 2009Q4

REPORT INFORMATION
  Report Type: 
  Country: None (occurrence: None)
  Receive Date: 20091016
  Receipt Date: 20091009
  Transmission Date: 20100525
  Serious: Yes (Hospitalization)
  Sender: FDA-Public Use
  Company Number: DE-BRISTOL-MYERS SQUIBB COMPANY-14696728

PATIENT
  Age: 70 Year
  Sex: Female

DRUGS (16)
  1. ABATACEPT [Suspect]
     Indication: PSORIATIC ARTHROPATHY
     Route: 042
     Dates: start: 20080715
  2. METOPROLOL [Concomitant]
     Dates: start: 20020101, end: 20090608
  3. RIVOTRIL [Concomitant]
     Dosage: LIQUID
     Dates: start: 20080304
  4. CALCIUM [Concomitant]
     Dates: start: 20070219
  5. CHOLECALCIFEROL [Concomitant]
     Dates: start: 20070219
  6. INDOMETHACIN [Concomitant]
     Indication: PSORIATIC ARTHROPATHY
     Dates: start: 20080401
  7. AMITRIPTYLINE [Concomitant]
     Dates: start: 20080401
  8. CLOTRIMAZOLE [Concomitant]
     Dosage: ALSO TAKEN ON 10DEC08
     Route: 061
     Dates: start: 20081013
  9. CLOBETASOL PROPIONATE [Concomitant]
     Dosage: CLOBETASOL CREME;ALSO TAKEN ON 10DEC08
     Dates: start: 20081013
  10. LEVODOPA [Concomitant]
     Dates: start: 20081206
  11. KALINOR [Concomitant]
     Dosage: KALINOR RETARD
     Dates: start: 20081206
  12. FURO [Concomitant]
     Dosage: FURO CT
     Dates: start: 20090602
  13. RAMIPRIL [Concomitant]
     Dates: start: 20090602
  14. ALDACTONE [Concomitant]
     Dates: start: 20090602
  15. ASPIRIN [Concomitant]
     Dates: start: 20090602
  16. BISOPROLOL [Concomitant]
     Dates: start: 20090607

REACTIONS (1)
  - CARDIAC FAILURE [None]
